FAERS Safety Report 9233635 (Version 1)
Quarter: 2013Q2

REPORT INFORMATION
  Report Type: Spontaneous
  Country: US (occurrence: US)
  Receive Date: 20130416
  Receipt Date: 20130416
  Transmission Date: 20140414
  Serious: No
  Sender: FDA-Public Use
  Company Number: US-BANPHARM-20130645

PATIENT
  Age: 66 Year
  Sex: Male
  Weight: 97.52 kg

DRUGS (7)
  1. ALEVE LIQUID GELS 220MG [Suspect]
     Dosage: 2 DF, PRN,
     Route: 048
  2. INSULIN [Concomitant]
  3. METFORMIN [Concomitant]
  4. METOPROLOL [Concomitant]
  5. DIOVAN [Concomitant]
  6. FISH OIL [Concomitant]
     Indication: VITAMIN SUPPLEMENTATION
  7. BAYER 81 MG ASPIRIN [Concomitant]

REACTIONS (3)
  - Glossodynia [Recovered/Resolved]
  - Tongue disorder [Recovered/Resolved]
  - Capsule physical issue [Unknown]
